FAERS Safety Report 7811028-3 (Version None)
Quarter: 2011Q4

REPORT INFORMATION
  Report Type: 
  Country: None (occurrence: None)
  Receive Date: 20111013
  Receipt Date: 20110930
  Transmission Date: 20120403
  Serious: Yes (Other)
  Sender: FDA-Public Use
  Company Number: US-BAYER-2010-007258

PATIENT
  Age: 30 Year
  Sex: Female
  Weight: 66.667 kg

DRUGS (6)
  1. DONNATAL [Concomitant]
     Dosage: 10 MG, UNK
     Route: 048
     Dates: start: 20081108
  2. YAZ [Suspect]
     Indication: CONTRACEPTION
     Dosage: UNK
     Dates: start: 20080701, end: 20081211
  3. MYLANTA [Concomitant]
     Dosage: 30 ML, UNK
     Route: 048
     Dates: start: 20081108
  4. ANTACIDS [Concomitant]
  5. ACIPHEX [Concomitant]
     Dosage: 20 MG, QD
     Route: 048
     Dates: start: 20081003
  6. LIDOCAINE [Concomitant]
     Dosage: 10 ML, UNK
     Route: 048
     Dates: start: 20081108

REACTIONS (8)
  - ANXIETY [None]
  - BILIARY COLIC [None]
  - ANHEDONIA [None]
  - POST CHOLECYSTECTOMY SYNDROME [None]
  - PAIN [None]
  - ABDOMINAL PAIN [None]
  - CHOLECYSTITIS CHRONIC [None]
  - CHOLELITHIASIS [None]
